FAERS Safety Report 20519842 (Version 2)
Quarter: 2022Q2

REPORT INFORMATION
  Report Type: Spontaneous
  Country: CN (occurrence: CN)
  Receive Date: 20220225
  Receipt Date: 20220512
  Transmission Date: 20220721
  Serious: Yes (Life-Threatening, Hospitalization, Other)
  Sender: FDA-Public Use
  Company Number: CN-Accord-255238

PATIENT
  Age: 65 Year
  Sex: Male

DRUGS (4)
  1. GEMCITABINE [Suspect]
     Active Substance: GEMCITABINE
     Indication: Natural killer-cell lymphoblastic lymphoma
     Dosage: 4 CYCLE
     Dates: start: 20200807
  2. OXALIPLATIN [Suspect]
     Active Substance: OXALIPLATIN
     Indication: Natural killer-cell lymphoblastic lymphoma
     Dosage: 4 CYCLE
     Dates: start: 20200807
  3. PEGASPARGASE [Suspect]
     Active Substance: PEGASPARGASE
     Indication: Natural killer-cell lymphoblastic lymphoma
     Dosage: 4 CYCLE
     Dates: start: 20200807
  4. SINTILIMAB [Suspect]
     Active Substance: SINTILIMAB
     Indication: Natural killer-cell lymphoblastic lymphoma
     Route: 042
     Dates: start: 20200807

REACTIONS (2)
  - Toxic epidermal necrolysis [Recovered/Resolved with Sequelae]
  - Depression [Recovering/Resolving]

NARRATIVE: CASE EVENT DATE: 20200101
